FAERS Safety Report 7805507-2 (Version None)
Quarter: 2011Q4

REPORT INFORMATION
  Report Type: 
  Country: None (occurrence: None)
  Receive Date: 20111010
  Receipt Date: 20111004
  Transmission Date: 20120403
  Serious: Yes (Life-Threatening, Hospitalization, Other)
  Sender: FDA-Public Use
  Company Number: PHHY2011IT56882

PATIENT
  Sex: Male

DRUGS (14)
  1. CUBICIN [Suspect]
     Indication: RELAPSING FEVER
     Dosage: 500 MG, DAILY
     Route: 042
     Dates: start: 20110610, end: 20110620
  2. MYCOPHENOLATE MOFETIL (CELLCEPT) [Concomitant]
     Dosage: 1 G, UNK
     Route: 048
  3. ESOPRAL [Concomitant]
     Dosage: 20 MG, UNK
     Route: 048
  4. PIPERACILLIN AND TAZOBACTAM [Concomitant]
     Dosage: UNK UKN, UNK
  5. CYCLOSPORINE [Suspect]
     Indication: RENAL TRANSPLANT
     Dosage: 200 MG, DAILY
     Route: 048
     Dates: start: 20100601
  6. DURAGESIC-100 [Concomitant]
     Dosage: 50 UG, UNK
     Route: 062
  7. LEVOFLOXACIN [Concomitant]
     Dosage: UNK UKN, UNK
  8. CYCLOSPORINE [Suspect]
     Dosage: 150 MG, UNK
     Route: 048
  9. ALLOPURINOL [Concomitant]
     Dosage: 150 MG, UNK
     Route: 048
  10. DEXAMETHASONE SODIUM PHOSPHATE [Concomitant]
     Dosage: 8 MG, UNK
  11. MEDROL [Concomitant]
     Dosage: 4 MG, QD
     Route: 048
  12. LANSOPRAZOLE [Concomitant]
     Dosage: 1 TABLET/ DAY
  13. PANTOPRAZOLE SODIUM [Concomitant]
     Dosage: 1 DF, UNK
     Route: 042
  14. LASIX [Concomitant]
     Dosage: 25 MG/ DAY
     Route: 048

REACTIONS (18)
  - MYOGLOBIN BLOOD INCREASED [None]
  - HYPERTRANSAMINASAEMIA [None]
  - ALANINE AMINOTRANSFERASE INCREASED [None]
  - HYPERCREATININAEMIA [None]
  - MYALGIA [None]
  - BURKHOLDERIA TEST POSITIVE [None]
  - PLEURAL EFFUSION [None]
  - BLOOD CREATINE PHOSPHOKINASE INCREASED [None]
  - RENAL FAILURE CHRONIC [None]
  - DYSPNOEA [None]
  - ANGIOSARCOMA [None]
  - AZOTAEMIA [None]
  - VOMITING [None]
  - PLEURAL DISORDER [None]
  - ASPARTATE AMINOTRANSFERASE INCREASED [None]
  - PYREXIA [None]
  - ATELECTASIS [None]
  - DECREASED APPETITE [None]
